FAERS Safety Report 22612153 (Version 1)
Quarter: 2023Q2

REPORT INFORMATION
  Report Type: Spontaneous
  Country: LT (occurrence: LT)
  Receive Date: 20230617
  Receipt Date: 20230617
  Transmission Date: 20230721
  Serious: Yes (Hospitalization)
  Sender: FDA-Public Use
  Company Number: None

PATIENT
  Age: 74 Year
  Sex: Male
  Weight: 90 kg

DRUGS (2)
  1. METOPROLOL [Suspect]
     Active Substance: METOPROLOL
     Indication: Hypertension
     Dosage: 19 DOSAGE FORM, (TOTAL)
     Route: 048
     Dates: start: 20230531, end: 20230531
  2. METOPROLOL [Suspect]
     Active Substance: METOPROLOL
     Dosage: 1 DOSAGE FORM, QD
     Route: 048

REACTIONS (6)
  - Anxiety [Recovered/Resolved]
  - Overdose [Recovered/Resolved]
  - Asthenia [Recovered/Resolved]
  - Suicide attempt [Recovered/Resolved]
  - Depression [Recovered/Resolved]
  - Product use in unapproved indication [Recovered/Resolved]

NARRATIVE: CASE EVENT DATE: 20230531
